FAERS Safety Report 14922834 (Version 1)
Quarter: 2018Q2

REPORT INFORMATION
  Report Type: Spontaneous
  Country: BR (occurrence: BR)
  Receive Date: 20180522
  Receipt Date: 20180522
  Transmission Date: 20180711
  Serious: Yes (Other)
  Sender: FDA-Public Use
  Company Number: BR-TORRENT-00004407

PATIENT
  Sex: Female

DRUGS (2)
  1. GLIBENCLAMIDA [Suspect]
     Active Substance: GLYBURIDE
     Indication: LATENT AUTOIMMUNE DIABETES IN ADULTS
     Dosage: UNKNOWN
     Route: 048
  2. METFORMIN [Suspect]
     Active Substance: METFORMIN HYDROCHLORIDE
     Indication: LATENT AUTOIMMUNE DIABETES IN ADULTS
     Dosage: UNKNOWN
     Route: 048

REACTIONS (1)
  - Diabetes mellitus inadequate control [Recovered/Resolved]
